FAERS Safety Report 10264208 (Version 1)
Quarter: 2014Q2

REPORT INFORMATION
  Report Type: Spontaneous
  Country: US (occurrence: None)
  Receive Date: 20140624
  Receipt Date: 20140624
  Transmission Date: 20141212
  Serious: Yes (Other)
  Sender: FDA-Public Use
  Company Number: None

PATIENT
  Age: 44 Year
  Sex: Female
  Weight: 79.38 kg

DRUGS (1)
  1. BELVIQ [Suspect]
     Indication: OBESITY
     Dosage: 10 MG BID TWICE DAILY TAKEN BY MOUTH
     Route: 048
     Dates: start: 20140620

REACTIONS (3)
  - Fatigue [None]
  - Asthenia [None]
  - Asthenia [None]
